FAERS Safety Report 10088831 (Version 2)
Quarter: 2014Q2

REPORT INFORMATION
  Report Type: Spontaneous
  Country: US (occurrence: US)
  Receive Date: 20140421
  Receipt Date: 20140421
  Transmission Date: 20141212
  Serious: No
  Sender: FDA-Public Use
  Company Number: US-JNJFOC-20140310581

PATIENT
  Age: 24 Year
  Sex: Female
  Weight: 62.6 kg

DRUGS (9)
  1. FENTANYL TRANSDERMAL SYSTEM [Suspect]
     Indication: BACK PAIN
     Route: 062
     Dates: start: 20140312
  2. PERCOCET [Concomitant]
     Indication: PAIN
     Route: 048
     Dates: start: 20140312
  3. CELEBREX [Concomitant]
     Indication: DIABETIC NEUROPATHY
     Route: 048
     Dates: start: 201401
  4. CYMBALTA [Concomitant]
     Indication: DIABETIC NEUROPATHY
     Route: 048
     Dates: start: 201401
  5. LYRICA [Concomitant]
     Indication: DIABETIC NEUROPATHY
     Route: 048
     Dates: start: 201401
  6. PRILOSEC [Concomitant]
     Indication: IMPAIRED GASTRIC EMPTYING
     Route: 048
     Dates: start: 201311
  7. NOVOLOG [Concomitant]
     Indication: DIABETES MELLITUS
     Route: 065
     Dates: start: 1998
  8. LANTUS [Concomitant]
     Indication: DIABETES MELLITUS
     Dosage: 25 UNITS
     Route: 058
     Dates: start: 201312
  9. HYDROCODONE [Concomitant]
     Indication: PAIN
     Dosage: 7.5 (UNIT NOT SPECIFIED)
     Route: 065
     Dates: start: 20140312

REACTIONS (3)
  - Application site pruritus [Not Recovered/Not Resolved]
  - Wrong technique in drug usage process [Unknown]
  - Product adhesion issue [Unknown]
